FAERS Safety Report 12756222 (Version 1)
Quarter: 2016Q3

REPORT INFORMATION
  Report Type: Spontaneous
  Country: US (occurrence: US)
  Receive Date: 20160916
  Receipt Date: 20160916
  Transmission Date: 20161109
  Serious: Yes (Death, Other)
  Sender: FDA-Public Use
  Company Number: US-GLAXOSMITHKLINE-US2016GSK134228

PATIENT
  Age: 24 Year
  Sex: Female

DRUGS (10)
  1. METHOTREXATE. [Suspect]
     Active Substance: METHOTREXATE
     Indication: PROPHYLAXIS AGAINST GRAFT VERSUS HOST DISEASE
  2. ACYCLOVIR. [Suspect]
     Active Substance: ACYCLOVIR
     Indication: ANTIBIOTIC PROPHYLAXIS
     Dosage: 800 MG, BID
     Route: 048
  3. BUSULFAN. [Suspect]
     Active Substance: BUSULFAN
     Indication: STEM CELL TRANSPLANT
  4. LEVOFLOXACIN. [Suspect]
     Active Substance: LEVOFLOXACIN
     Indication: ANTIBIOTIC PROPHYLAXIS
     Dosage: 500 MG, QD
     Route: 048
  5. ANTI-THYMOCYTE GLOBULIN [Suspect]
     Active Substance: THYMOCYTE IMMUNE GLOBULIN NOS
     Indication: STEM CELL TRANSPLANT
     Dosage: 4 MG/KG, UNK
  6. GANCICLOVIR. [Suspect]
     Active Substance: GANCICLOVIR
     Indication: PRODUCT USED FOR UNKNOWN INDICATION
     Dosage: 2.5 MG/KG Q12 H
     Route: 042
  7. FLUDARABINE [Suspect]
     Active Substance: FLUDARABINE PHOSPHATE
     Indication: STEM CELL TRANSPLANT
  8. TACROLIMUS. [Suspect]
     Active Substance: TACROLIMUS
     Indication: PROPHYLAXIS AGAINST GRAFT VERSUS HOST DISEASE
  9. TRIMETHOPRIM + SULFAMETHOXAZOLE [Suspect]
     Active Substance: SULFAMETHOXAZOLE\TRIMETHOPRIM
     Indication: ANTIBIOTIC PROPHYLAXIS
     Dosage: 80/400 MG PER OS THREE TIMES A WEEK
     Route: 048
  10. FLUCONAZOLE. [Suspect]
     Active Substance: FLUCONAZOLE
     Indication: ANTIBIOTIC PROPHYLAXIS
     Dosage: 400 MG, QD
     Route: 048

REACTIONS (19)
  - Lymphopenia [Unknown]
  - Adrenal insufficiency [Unknown]
  - Thrombocytopenia [Unknown]
  - Sepsis [Fatal]
  - Respiratory failure [Unknown]
  - Pneumonitis [Unknown]
  - Hepatic enzyme increased [Recovered/Resolved]
  - Drug resistance [Unknown]
  - Renal failure [Unknown]
  - BK virus infection [Unknown]
  - Obstructive uropathy [Unknown]
  - Immune reconstitution inflammatory syndrome [Unknown]
  - Cytomegalovirus infection [Unknown]
  - Epstein-Barr virus infection [Unknown]
  - Adenovirus infection [Unknown]
  - Cystitis haemorrhagic [Unknown]
  - Condition aggravated [Unknown]
  - Graft versus host disease [Unknown]
  - Pyrexia [Unknown]
